FAERS Safety Report 10882276 (Version 3)
Quarter: 2015Q2

REPORT INFORMATION
  Report Type: Spontaneous
  Country: US (occurrence: None)
  Receive Date: 20150226
  Receipt Date: 20150408
  Transmission Date: 20150821
  Serious: Yes (Hospitalization)
  Sender: FDA-Public Use
  Company Number: US-H14001-15-00288

PATIENT
  Age: 12 Year
  Sex: Female

DRUGS (3)
  1. LITHIUM. [Suspect]
     Active Substance: LITHIUM
     Indication: BIPOLAR DISORDER
     Dosage: 8.5 MG/KG IN THE MORNING AND 5.7 MG/KG IN THE NIGHT
     Route: 048
     Dates: start: 2000, end: 201306
  2. GUANFACINE. [Concomitant]
     Active Substance: GUANFACINE
  3. QUETIAPINE [Concomitant]
     Active Substance: QUETIAPINE

REACTIONS (20)
  - Blood sodium decreased [None]
  - Oedema [None]
  - Respiratory tract congestion [None]
  - Swelling face [None]
  - White blood cell count increased [None]
  - Blood albumin decreased [None]
  - Nausea [None]
  - Muscle contractions involuntary [None]
  - Pulmonary congestion [None]
  - Generalised oedema [None]
  - Clonus [None]
  - Toxicity to various agents [None]
  - Acute kidney injury [None]
  - Vomiting [None]
  - Dysarthria [None]
  - Breath sounds abnormal [None]
  - Cough [None]
  - Pleural effusion [None]
  - Electrocardiogram QT prolonged [None]
  - Tremor [None]

NARRATIVE: CASE EVENT DATE: 201306
